FAERS Safety Report 5847865-4 (Version None)
Quarter: 2008Q3

REPORT INFORMATION
  Report Type: 
  Country: None (occurrence: None)
  Receive Date: 20080814
  Receipt Date: 20080814
  Transmission Date: 20090109
  Serious: No
  Sender: FDA-Public Use
  Company Number: None

PATIENT
  Age: 39 Year
  Sex: Female
  Weight: 61.2356 kg

DRUGS (1)
  1. LEVAQUIN [Suspect]
     Indication: RESPIRATORY DISORDER
     Dates: start: 20070318, end: 20070327

REACTIONS (4)
  - ABASIA [None]
  - MEDICATION ERROR [None]
  - SWELLING [None]
  - TENDON DISORDER [None]
